FAERS Safety Report 7209281-2 (Version None)
Quarter: 2011Q1

REPORT INFORMATION
  Report Type: 
  Country: None (occurrence: None)
  Receive Date: 20110104
  Receipt Date: 20101230
  Transmission Date: 20110831
  Serious: Yes (Other)
  Sender: FDA-Public Use
  Company Number: B0690280A

PATIENT
  Sex: Female

DRUGS (6)
  1. NEOCODION [Suspect]
     Indication: BRONCHITIS
     Route: 048
     Dates: start: 20101118, end: 20101122
  2. AUGMENTIN [Suspect]
     Indication: BRONCHITIS
     Dosage: 1G TWICE PER DAY
     Route: 048
     Dates: start: 20101118, end: 20101122
  3. RHINADVIL [Suspect]
     Indication: BRONCHITIS
     Dosage: 1TAB TWICE PER DAY
     Route: 048
     Dates: start: 20101118, end: 20101121
  4. DOLIPRANE [Suspect]
     Indication: BRONCHITIS
     Dosage: 1G THREE TIMES PER DAY
     Route: 048
     Dates: start: 20101118, end: 20101123
  5. PERFALGAN [Concomitant]
     Route: 065
     Dates: start: 20101123, end: 20101123
  6. SPIRIVA [Suspect]
     Indication: BRONCHITIS
     Route: 048
     Dates: start: 20101118, end: 20101122

REACTIONS (4)
  - LEUKOPENIA [None]
  - THROMBOCYTOPENIA [None]
  - AGRANULOCYTOSIS [None]
  - MONOCYTOPENIA [None]
